FAERS Safety Report 20750024 (Version 1)
Quarter: 2022Q2

REPORT INFORMATION
  Report Type: Spontaneous
  Country: US (occurrence: None)
  Receive Date: 20220425
  Receipt Date: 20220425
  Transmission Date: 20220721
  Serious: Yes (Hospitalization, Disabling)
  Sender: FDA-Public Use
  Company Number: None

PATIENT
  Age: 27 Year
  Sex: Male
  Weight: 81 kg

DRUGS (1)
  1. CIPROFLOXACIN AND DEXAMETHASONE [Suspect]
     Active Substance: CIPROFLOXACIN HYDROCHLORIDE\DEXAMETHASONE
     Indication: Tympanic membrane perforation
     Dosage: OTHER QUANTITY : 4 DROP(S);?FREQUENCY : EVERY 12 HOURS;?
     Route: 001
     Dates: start: 20220414, end: 20220415

REACTIONS (2)
  - Neuropathy peripheral [None]
  - Tendonitis [None]

NARRATIVE: CASE EVENT DATE: 20220414
